FAERS Safety Report 9228555 (Version 1)
Quarter: 2013Q2

REPORT INFORMATION
  Report Type: Spontaneous
  Country: CH (occurrence: CH)
  Receive Date: 20130412
  Receipt Date: 20130412
  Transmission Date: 20140414
  Serious: Yes (Hospitalization)
  Sender: FDA-Public Use
  Company Number: CH-009507513-1304CHE004509

PATIENT
  Age: 87 Year
  Sex: Female

DRUGS (13)
  1. PRINIL MEPHA [Suspect]
     Indication: CARDIAC FAILURE
     Dosage: 5 MG, QD
     Route: 048
  2. DIGOXIN [Suspect]
     Indication: ATRIAL FLUTTER
     Dosage: 0.25 MG, QD
     Route: 048
     Dates: start: 20130219, end: 20130319
  3. DIGOXIN [Suspect]
     Indication: ATRIAL FIBRILLATION
  4. FUROSEMIDE [Suspect]
     Indication: CARDIAC FAILURE
     Dosage: 40 MG, QD
     Route: 048
  5. TORSEMIDE [Suspect]
     Indication: CARDIAC FAILURE
     Dosage: 10 MG, QD
     Route: 048
  6. ASPIRINE [Concomitant]
     Indication: MYOCARDIAL ISCHAEMIA
     Dosage: 100 MG, QD
     Route: 048
  7. SINTROM [Concomitant]
     Dosage: ACCORDING TO INR
     Route: 048
  8. METOPROLOL [Concomitant]
     Indication: ATRIAL FIBRILLATION
     Dosage: 25 MG, QD
     Route: 048
  9. METOPROLOL [Concomitant]
     Indication: ATRIAL FLUTTER
  10. LEVOTHYROXINE SODIUM [Concomitant]
     Indication: HYPOTHYROIDISM
     Dosage: 50 MICROGRAM, QD
     Route: 048
  11. FOLIC ACID [Concomitant]
     Indication: ANAEMIA FOLATE DEFICIENCY
     Dosage: 5 MG, QD
     Route: 048
  12. DISTRANEURIN [Concomitant]
     Indication: INSOMNIA
     Dosage: 300 MG, QD
     Route: 048
  13. SIMVASTATIN [Concomitant]
     Indication: MYOCARDIAL ISCHAEMIA
     Dosage: 20 MG, QD
     Route: 048

REACTIONS (10)
  - Renal failure acute [Recovered/Resolved]
  - Overdose [Recovered/Resolved]
  - Therapeutic response increased [Recovered/Resolved]
  - Dehydration [Recovered/Resolved]
  - Nausea [Recovered/Resolved]
  - Vomiting [Recovered/Resolved]
  - Weight decreased [Recovered/Resolved]
  - Delirium [Recovered/Resolved]
  - Chromatopsia [Recovered/Resolved]
  - Fall [Recovered/Resolved]
